FAERS Safety Report 8824929 (Version 1)
Quarter: 2012Q4

REPORT INFORMATION
  Report Type: 
  Country: CN (occurrence: CN)
  Receive Date: 20121004
  Receipt Date: 20121004
  Transmission Date: 20130627
  Serious: Yes (Hospitalization)
  Sender: FDA-Public Use
  Company Number: CN-JNJFOC-20120912668

PATIENT
  Age: 1 Year
  Sex: Male

DRUGS (1)
  1. PARACETAMOL [Suspect]
     Indication: PYREXIA
     Route: 048
     Dates: start: 20091207, end: 20091207

REACTIONS (4)
  - Convulsion [Recovered/Resolved]
  - Dyspnoea [Recovered/Resolved]
  - Eye disorder [Recovered/Resolved]
  - Pallor [Recovered/Resolved]
